FAERS Safety Report 7266873-2 (Version None)
Quarter: 2011Q1

REPORT INFORMATION
  Report Type: 
  Country: None (occurrence: None)
  Receive Date: 20110201
  Receipt Date: 20100927
  Transmission Date: 20110831
  Serious: Yes (Other)
  Sender: FDA-Public Use
  Company Number: CHPA2010US15279

PATIENT
  Age: 55 Year
  Sex: Female
  Weight: 88.435 kg

DRUGS (4)
  1. VOLTAREN [Suspect]
     Indication: PRURITUS
     Dosage: 1 GRAM, QID
     Route: 061
     Dates: start: 20100101
  2. VOLTAREN [Suspect]
     Indication: CONTUSION
     Dosage: UNK, ONCE FOR MOSQUITO BITE
     Route: 061
  3. VOLTAREN [Suspect]
     Indication: ARTHROPOD BITE
  4. VOLTAREN [Suspect]
     Indication: PAIN

REACTIONS (8)
  - FALL [None]
  - RIB FRACTURE [None]
  - OFF LABEL USE [None]
  - SHOULDER ARTHROPLASTY [None]
  - DRUG ADMINISTERED AT INAPPROPRIATE SITE [None]
  - WRONG TECHNIQUE IN DRUG USAGE PROCESS [None]
  - INJURY [None]
  - THERAPEUTIC RESPONSE UNEXPECTED [None]
